FAERS Safety Report 7206528-3 (Version None)
Quarter: 2010Q4

REPORT INFORMATION
  Report Type: 
  Country: None (occurrence: None)
  Receive Date: 20101217
  Receipt Date: 20101202
  Transmission Date: 20110411
  Serious: Yes (Hospitalization)
  Sender: FDA-Public Use
  Company Number: 2010005333

PATIENT
  Age: 57 Year
  Sex: Male

DRUGS (18)
  1. ERLOTINIB (TABLET) [Suspect]
     Indication: NON-SMALL CELL LUNG CANCER
     Dosage: 150 MG, /M2 15 X PER 21 DAY, ORAL
     Route: 048
     Dates: start: 20101013
  2. ERIBULIN MESYLATE (INJECTION FOR INFUSION) [Suspect]
     Indication: NON-SMALL CELL LUNG CANCER
     Dosage: 2 MG/M2, 2 MG/M2 1 X PER 21 DAY, INTRAVENOUS
     Route: 042
     Dates: start: 20101013
  3. TAMSULOSIN [Concomitant]
  4. SPIRIVA [Concomitant]
  5. FUROSEMIDE [Concomitant]
  6. POTASSIUM [Concomitant]
  7. PRO-AIR (PROCATEROL HYDROCHLORIDE) [Concomitant]
  8. MS CONTIN [Concomitant]
  9. ROBAXIN [Concomitant]
  10. ELAVIL [Concomitant]
  11. COMPAZINE [Concomitant]
  12. DOXYCYCLINE [Concomitant]
  13. MILK OF MAGNESIA TAB [Concomitant]
  14. LEVAQUIN [Concomitant]
  15. MEDROL [Concomitant]
  16. CLINDAMYCIN [Concomitant]
  17. LOTRISONE [Concomitant]
  18. SERTRALINE HYDROCHLORIDE [Concomitant]

REACTIONS (3)
  - HAEMOPTYSIS [None]
  - PNEUMONIA [None]
  - RESPIRATORY FAILURE [None]
